FAERS Safety Report 12654163 (Version 1)
Quarter: 2016Q3

REPORT INFORMATION
  Report Type: Spontaneous
  Country: US (occurrence: US)
  Receive Date: 20160816
  Receipt Date: 20160816
  Transmission Date: 20161109
  Serious: No
  Sender: FDA-Public Use
  Company Number: US-BAYER-2016-158755

PATIENT
  Age: 67 Year
  Sex: Male
  Weight: 95.24 kg

DRUGS (1)
  1. CLARITIN REDITABS [Suspect]
     Active Substance: LORATADINE
     Indication: RASH PRURITIC
     Dosage: 1 DF, QD
     Route: 048
     Dates: start: 20160813

REACTIONS (1)
  - Off label use [None]

NARRATIVE: CASE EVENT DATE: 20160813
